FAERS Safety Report 7722257-1 (Version None)
Quarter: 2011Q3

REPORT INFORMATION
  Report Type: 
  Country: None (occurrence: None)
  Receive Date: 20110831
  Receipt Date: 20110819
  Transmission Date: 20111222
  Serious: Yes (Death, Disabling)
  Sender: FDA-Public Use
  Company Number: JP-ELI_LILLY_AND_COMPANY-JP201108002649

PATIENT
  Age: 52 Year
  Sex: Female

DRUGS (5)
  1. TOLEDOMIN [Concomitant]
     Dosage: 25 MG, UNK
     Route: 048
  2. VOLTAREN                                /SCH/ [Concomitant]
     Dosage: 25 MG, UNK
     Route: 054
  3. LENDORMIN [Concomitant]
     Dosage: 0.25 MG, QD
     Route: 048
     Dates: start: 20110727
  4. ZYPREXA [Suspect]
     Indication: PROPHYLAXIS OF NAUSEA AND VOMITING
     Dosage: 5 MG, QD
     Route: 048
     Dates: start: 20110727, end: 20110801
  5. MOTILIUM [Concomitant]
     Dosage: 60 MG, UNK
     Route: 054

REACTIONS (3)
  - NEOPLASM PROGRESSION [None]
  - OFF LABEL USE [None]
  - VITH NERVE PARALYSIS [None]
